FAERS Safety Report 9571449 (Version 1)
Quarter: 2013Q3

REPORT INFORMATION
  Report Type: Spontaneous
  Country: US (occurrence: None)
  Receive Date: 20130927
  Receipt Date: 20130927
  Transmission Date: 20140515
  Serious: No
  Sender: FDA-Public Use
  Company Number: None

PATIENT
  Age: 65 Year
  Sex: Male
  Weight: 81.65 kg

DRUGS (2)
  1. DOXYCYCLINE HYCLATE [Suspect]
     Indication: SINUS DISORDER
     Route: 048
     Dates: start: 20130820, end: 20130909
  2. DOXYCYCLINE HYCLATE [Suspect]
     Indication: SWELLING
     Route: 048
     Dates: start: 20130820, end: 20130909

REACTIONS (6)
  - Swollen tongue [None]
  - Diarrhoea [None]
  - Tongue coated [None]
  - Vision blurred [None]
  - Dysphonia [None]
  - Rash [None]
